FAERS Safety Report 6656888-7 (Version None)
Quarter: 2010Q1

REPORT INFORMATION
  Report Type: 
  Country: None (occurrence: None)
  Receive Date: 20100329
  Receipt Date: 20100329
  Transmission Date: 20100710
  Serious: Yes (Other)
  Sender: FDA-Public Use
  Company Number: None

PATIENT
  Age: 68 Year
  Sex: Female
  Weight: 58.514 kg

DRUGS (2)
  1. LOVAZA [Suspect]
     Indication: MYALGIA
     Dosage: 1GM X 2 BID PO
     Route: 048
     Dates: start: 20090601, end: 20100301
  2. TRILIPIX [Suspect]
     Indication: NAUSEA
     Dosage: TRILIPIX 135MG QD PO
     Route: 048
     Dates: start: 20100122, end: 20100222

REACTIONS (2)
  - MYALGIA [None]
  - NAUSEA [None]
